FAERS Safety Report 17003940 (Version 1)
Quarter: 2019Q4

REPORT INFORMATION
  Report Type: Spontaneous
  Country: JP (occurrence: JP)
  Receive Date: 20191107
  Receipt Date: 20191107
  Transmission Date: 20200122
  Serious: Yes (Other)
  Sender: FDA-Public Use
  Company Number: JP-PFIZER INC-2019426189

PATIENT
  Age: 25 Year
  Sex: Male

DRUGS (5)
  1. EFFEXOR [Suspect]
     Active Substance: VENLAFAXINE HYDROCHLORIDE
     Dosage: 112.5 MG, DAILYX 7
     Route: 048
     Dates: start: 20191008
  2. EFFEXOR [Suspect]
     Active Substance: VENLAFAXINE HYDROCHLORIDE
     Indication: DEPRESSION
     Dosage: 150 MG, DAILY X 7
     Route: 048
     Dates: start: 20191015
  3. LUNESTA [Suspect]
     Active Substance: ESZOPICLONE
     Dosage: 2 MG, UNK
  4. EFFEXOR [Suspect]
     Active Substance: VENLAFAXINE HYDROCHLORIDE
     Dosage: 75 MG, DAILYX 7
     Route: 048
     Dates: start: 20191001
  5. EFFEXOR [Suspect]
     Active Substance: VENLAFAXINE HYDROCHLORIDE
     Indication: DEPRESSION
     Dosage: 37.5 MG, DAILYX 7
     Route: 048
     Dates: start: 20190924

REACTIONS (8)
  - Fatigue [Unknown]
  - Mania [Unknown]
  - Overdose [Recovering/Resolving]
  - Altered state of consciousness [Recovered/Resolved]
  - Affect lability [Recovering/Resolving]
  - Agitation [Unknown]
  - Incorrect dose administered [Recovering/Resolving]
  - Dysarthria [Unknown]

NARRATIVE: CASE EVENT DATE: 20191001
